FAERS Safety Report 19074927 (Version 1)
Quarter: 2021Q1

REPORT INFORMATION
  Report Type: Report from Study
  Country: ZA (occurrence: ZA)
  Receive Date: 20210330
  Receipt Date: 20210330
  Transmission Date: 20210420
  Serious: Yes (Hospitalization)
  Sender: FDA-Public Use
  Company Number: NVSC2021ZA068157

PATIENT
  Sex: Male

DRUGS (1)
  1. SLOW?K [Suspect]
     Active Substance: POTASSIUM CHLORIDE
     Indication: CARDIAC FAILURE
     Dosage: UNK, QD
     Route: 048

REACTIONS (5)
  - Glomerular filtration rate decreased [Unknown]
  - Orthopnoea [Unknown]
  - Ejection fraction decreased [Unknown]
  - Dyspnoea [Unknown]
  - Cardiac failure [Unknown]
